FAERS Safety Report 4481032-4 (Version None)
Quarter: 2004Q3

REPORT INFORMATION
  Report Type: 
  Country: None (occurrence: None)
  Receive Date: 20040923
  Receipt Date: 20040728
  Transmission Date: 20050211
  Serious: No
  Sender: FDA-Public Use
  Company Number: USA030843959

PATIENT
  Age: 77 Year
  Sex: Female
  Weight: 45 kg

DRUGS (10)
  1. FORTEO [Suspect]
     Indication: OSTEOPOROSIS
     Dosage: 20 UG DAY
     Dates: start: 20030806
  2. THENOIC ACID [Concomitant]
  3. MIRAPEX (MIRAPEX) [Concomitant]
  4. PREVACID [Concomitant]
  5. LORAZEPAM [Concomitant]
  6. LASIX [Concomitant]
  7. VITAMIN C [Concomitant]
  8. VITAMIN D [Concomitant]
  9. VITAMIN E [Concomitant]
  10. CITRACAL WITH VITAMIN D [Concomitant]

REACTIONS (13)
  - BLOOD CALCIUM INCREASED [None]
  - DIZZINESS [None]
  - FEELING ABNORMAL [None]
  - HYPOAESTHESIA [None]
  - INJECTION SITE ERYTHEMA [None]
  - INJECTION SITE HAEMORRHAGE [None]
  - INJECTION SITE MASS [None]
  - INJECTION SITE NODULE [None]
  - MACULAR DEGENERATION [None]
  - NERVOUSNESS [None]
  - OSTEOCALCIN INCREASED [None]
  - OVERDOSE [None]
  - SHOULDER DEFORMITY [None]
